FAERS Safety Report 14877465 (Version 8)
Quarter: 2024Q4

REPORT INFORMATION
  Report Type: Report from Study
  Country: US (occurrence: US)
  Receive Date: 20180510
  Receipt Date: 20241227
  Transmission Date: 20250115
  Serious: Yes (Hospitalization, Other)
  Sender: TAKEDA
  Company Number: US-SHIRE-US201815913

PATIENT
  Sex: Female

DRUGS (2)
  1. HUMAN IMMUNOGLOBULIN G [Suspect]
     Active Substance: HUMAN IMMUNOGLOBULIN G
     Indication: Primary immunodeficiency syndrome
     Dosage: UNK
  2. HUMAN IMMUNOGLOBULIN G [Suspect]
     Active Substance: HUMAN IMMUNOGLOBULIN G
     Indication: Immunodeficiency common variable

REACTIONS (12)
  - Systemic lupus erythematosus [Unknown]
  - Cardiac disorder [Unknown]
  - Fall [Recovering/Resolving]
  - Shoulder fracture [Recovering/Resolving]
  - Chest pain [Unknown]
  - Tachycardia [Unknown]
  - Sleep apnoea syndrome [Unknown]
  - Neurological decompensation [Unknown]
  - Inappropriate schedule of product administration [Unknown]
  - Product dose omission issue [Unknown]
  - Asthenia [Unknown]
  - Fatigue [Unknown]
